FAERS Safety Report 11344179 (Version 2)
Quarter: 2015Q3

REPORT INFORMATION
  Report Type: Spontaneous
  Country: US (occurrence: US)
  Receive Date: 20150806
  Receipt Date: 20150908
  Transmission Date: 20151125
  Serious: Yes (Hospitalization, Other)
  Sender: FDA-Public Use
  Company Number: US-ELI_LILLY_AND_COMPANY-US201508000252

PATIENT
  Age: 55 Year
  Sex: Female
  Weight: 87.98 kg

DRUGS (16)
  1. HUMALOG [Suspect]
     Active Substance: INSULIN LISPRO
     Dosage: 4/6/4 U, TID
     Route: 058
  2. PREDNISONE. [Concomitant]
     Active Substance: PREDNISONE
  3. COLACE [Concomitant]
     Active Substance: DOCUSATE SODIUM
  4. HUMALOG [Suspect]
     Active Substance: INSULIN LISPRO
     Indication: TYPE 2 DIABETES MELLITUS
     Dosage: 1 U, TID
     Route: 058
  5. LANTUS [Suspect]
     Active Substance: INSULIN GLARGINE
     Indication: TYPE 2 DIABETES MELLITUS
     Route: 065
  6. AMOXICILLIN. [Suspect]
     Active Substance: AMOXICILLIN
     Indication: PRODUCT USED FOR UNKNOWN INDICATION
     Route: 065
  7. MYCOPHENOLIC ACID. [Concomitant]
     Active Substance: MYCOPHENOLIC ACID
  8. LYRICA [Concomitant]
     Active Substance: PREGABALIN
  9. HUMALOG [Suspect]
     Active Substance: INSULIN LISPRO
     Dosage: 5 U, TID
     Route: 058
  10. HUMALOG [Suspect]
     Active Substance: INSULIN LISPRO
     Dosage: UNK UNK, PRN
     Route: 058
  11. HUMALOG [Suspect]
     Active Substance: INSULIN LISPRO
     Dosage: 4/6/4 U, TID
     Route: 058
  12. POTASSIUM [Concomitant]
     Active Substance: POTASSIUM
  13. NORVASC [Concomitant]
     Active Substance: AMLODIPINE BESYLATE
  14. FOSAMAX [Concomitant]
     Active Substance: ALENDRONATE SODIUM
  15. SENNA [Concomitant]
     Active Substance: SENNA LEAF\SENNOSIDES\SENNOSIDES A AND B
  16. CALCIUM CARBONATE. [Concomitant]
     Active Substance: CALCIUM CARBONATE

REACTIONS (12)
  - Onychomadesis [Unknown]
  - Cerebrovascular accident [Unknown]
  - Oral disorder [Unknown]
  - Stevens-Johnson syndrome [Unknown]
  - Tremor [Unknown]
  - Tooth disorder [Unknown]
  - Scar [Unknown]
  - Autoimmune disorder [Recovering/Resolving]
  - Fibromyalgia [Unknown]
  - Hypoaesthesia [Unknown]
  - Hemiparesis [Not Recovered/Not Resolved]
  - Gingival disorder [Unknown]

NARRATIVE: CASE EVENT DATE: 201401
